FAERS Safety Report 19485618 (Version 2)
Quarter: 2021Q3

REPORT INFORMATION
  Report Type: Report from Study
  Country: BR (occurrence: BR)
  Receive Date: 20210702
  Receipt Date: 20210722
  Transmission Date: 20211014
  Serious: Yes (Other)
  Sender: FDA-Public Use
  Company Number: NVSC2021BR140843

PATIENT
  Age: 38 Year
  Sex: Female

DRUGS (2)
  1. COSENTYX [Suspect]
     Active Substance: SECUKINUMAB
     Indication: ANKYLOSING SPONDYLITIS
     Dosage: UNK
     Route: 065
     Dates: start: 20180423
  2. COSENTYX [Suspect]
     Active Substance: SECUKINUMAB
     Dosage: UNK
     Route: 065
     Dates: start: 20210523

REACTIONS (15)
  - Asphyxia [Unknown]
  - Influenza [Recovered/Resolved with Sequelae]
  - Joint noise [Not Recovered/Not Resolved]
  - Drug dependence [Unknown]
  - Diabetes mellitus [Not Recovered/Not Resolved]
  - Feeling abnormal [Unknown]
  - Spinal pain [Not Recovered/Not Resolved]
  - Anosmia [Not Recovered/Not Resolved]
  - Arthralgia [Not Recovered/Not Resolved]
  - Palpitations [Not Recovered/Not Resolved]
  - Syncope [Unknown]
  - Anxiety [Unknown]
  - Suspected COVID-19 [Unknown]
  - Hypertension [Not Recovered/Not Resolved]
  - Pain [Not Recovered/Not Resolved]

NARRATIVE: CASE EVENT DATE: 2020
